FAERS Safety Report 14577005 (Version 1)
Quarter: 2018Q1

REPORT INFORMATION
  Report Type: Spontaneous
  Country: US (occurrence: US)
  Receive Date: 20180225
  Receipt Date: 20180225
  Transmission Date: 20180509
  Serious: Yes (Life-Threatening, Hospitalization, Other)
  Sender: FDA-Public Use
  Company Number: None

PATIENT
  Age: 49 Year
  Sex: Male
  Weight: 90.9 kg

DRUGS (9)
  1. HYDROCODONE [Concomitant]
     Active Substance: HYDROCODONE
  2. SYMBICORT [Concomitant]
     Active Substance: BUDESONIDE\FORMOTEROL FUMARATE DIHYDRATE
  3. PILOCARPINE. [Concomitant]
     Active Substance: PILOCARPINE
  4. TAMIFLU [Suspect]
     Active Substance: OSELTAMIVIR PHOSPHATE
     Indication: INFLUENZA
     Dosage: ?          QUANTITY:10 CAPSULE(S);?
     Route: 048
  5. MULTIVITAMIN [Concomitant]
     Active Substance: VITAMINS
  6. TRIPLE FLEX JOINT CARE [Concomitant]
  7. GABBAPENTIN [Concomitant]
  8. VYVANSE [Concomitant]
     Active Substance: LISDEXAMFETAMINE DIMESYLATE
  9. SINGULAIR [Concomitant]
     Active Substance: MONTELUKAST SODIUM

REACTIONS (5)
  - Fall [None]
  - Seizure [None]
  - Cervical vertebral fracture [None]
  - Eye pain [None]
  - Urticaria [None]

NARRATIVE: CASE EVENT DATE: 20180129
